FAERS Safety Report 9807130 (Version 1)
Quarter: 2014Q1

REPORT INFORMATION
  Report Type: Report from Study
  Country: US (occurrence: US)
  Receive Date: 20140110
  Receipt Date: 20140110
  Transmission Date: 20141002
  Serious: Yes (Death)
  Sender: FDA-Public Use
  Company Number: US-ROCHE-1331736

PATIENT
  Age: 50 Year
  Sex: Female
  Weight: 105.33 kg

DRUGS (11)
  1. AVASTIN [Suspect]
     Indication: GLIOBLASTOMA MULTIFORME
     Dosage: THE PATIENT RECEIVED INTRAVENOUS DOSE OVER 30 MINUTES.  ON 14/APR/2011, THE PATIENT RECEIVED SAME DO
     Route: 042
     Dates: start: 20110128
  2. AVASTIN [Suspect]
     Indication: BRAIN NEOPLASM MALIGNANT
  3. AVASTIN [Suspect]
     Indication: BRAIN NEOPLASM MALIGNANT
  4. TYLENOL [Concomitant]
     Route: 048
     Dates: start: 20110128
  5. TYLENOL [Concomitant]
     Dosage: RECEIVED ON 07/JUL/2011
     Route: 048
  6. BENADRYL (UNITED STATES) [Concomitant]
     Route: 048
     Dates: start: 20110128
  7. BENADRYL (UNITED STATES) [Concomitant]
     Route: 048
     Dates: start: 20110525
  8. NS 0.9% [Concomitant]
     Route: 042
     Dates: start: 20110526
  9. HEPARIN [Concomitant]
  10. DECADRON [Concomitant]
     Route: 065
  11. DECADRON [Concomitant]
     Route: 065

REACTIONS (3)
  - Death [Fatal]
  - Alopecia [Unknown]
  - Rhonchi [Unknown]
